FAERS Safety Report 17235501 (Version 1)
Quarter: 2020Q1

REPORT INFORMATION
  Report Type: Spontaneous
  Country: US (occurrence: US)
  Receive Date: 20200106
  Receipt Date: 20200106
  Transmission Date: 20200409
  Serious: Yes (Other)
  Sender: FDA-Public Use
  Company Number: US-GLAXOSMITHKLINE-US2019236430

PATIENT
  Sex: Male

DRUGS (1)
  1. 4 WAY FAST ACTING [Suspect]
     Active Substance: PHENYLEPHRINE HYDROCHLORIDE
     Indication: DYSPNOEA
     Dosage: UNK, (USED FOR COUPLE OF DAYS)

REACTIONS (6)
  - Somnolence [Unknown]
  - Road traffic accident [Unknown]
  - Product use in unapproved indication [Unknown]
  - Dependence [Unknown]
  - Asthenopia [Unknown]
  - Fatigue [Unknown]
